FAERS Safety Report 24810590 (Version 1)
Quarter: 2025Q1

REPORT INFORMATION
  Report Type: Spontaneous
  Country: US (occurrence: US)
  Receive Date: 20250106
  Receipt Date: 20250106
  Transmission Date: 20250409
  Serious: No
  Sender: DR REDDYS
  Company Number: None

PATIENT
  Age: 66 Year
  Sex: Female

DRUGS (9)
  1. CLOZAPINE [Suspect]
     Active Substance: CLOZAPINE
     Indication: Schizophrenia
     Dosage: INITIAL DOSE [DAYS OF THERAPY 0 TO DAYS OF THERAPY 6]
  2. CLOZAPINE [Suspect]
     Active Substance: CLOZAPINE
     Dosage: DAYS OF THERAPY 7 TO DAYS OF THERAPY 13
  3. CLOZAPINE [Suspect]
     Active Substance: CLOZAPINE
     Dosage: DAYS OF THERAPY 14 TO DAYS OF THERAPY 20
  4. CLOZAPINE [Suspect]
     Active Substance: CLOZAPINE
     Dosage: DAYS OF THERAPY 21 TO DAYS OF THERAPY 27
  5. CLOZAPINE [Suspect]
     Active Substance: CLOZAPINE
     Dosage: TITRATED TO 300 MG/DAY BY DAY 28 [DAYS OF THERAPY  28 TO DAYS OF THERAPY 41 (UNKNOWN)]
  6. CLOZAPINE [Suspect]
     Active Substance: CLOZAPINE
     Dosage: DAYS OF THERAPY 55 TO DAYS OF THERAPY 219
  7. CLOZAPINE [Suspect]
     Active Substance: CLOZAPINE
     Dosage: DAYS OF THERAPY 219 TO DAYS OF THERAPY 271
  8. CLOZAPINE [Suspect]
     Active Substance: CLOZAPINE
     Dosage: DAYS OF THERAPY 889 TO DAYS OF THERAPY 933
  9. CLOZAPINE [Suspect]
     Active Substance: CLOZAPINE
     Dosage: DAYS OF THERAPY 972, TO DAYS OF THERAPY 1006

REACTIONS (1)
  - Eosinopenia [Unknown]
